FAERS Safety Report 7458952-1 (Version None)
Quarter: 2011Q2

REPORT INFORMATION
  Report Type: 
  Country: None (occurrence: None)
  Receive Date: 20110504
  Receipt Date: 20100812
  Transmission Date: 20111010
  Serious: No
  Sender: FDA-Public Use
  Company Number: US-SANOFI-AVENTIS-2010SA050287

PATIENT
  Sex: Female

DRUGS (2)
  1. APIDRA [Suspect]
     Indication: TYPE 1 DIABETES MELLITUS
     Route: 065
     Dates: start: 20100701
  2. LANTUS [Suspect]
     Indication: TYPE 1 DIABETES MELLITUS
     Dates: start: 20100701

REACTIONS (2)
  - NAUSEA [None]
  - HEADACHE [None]
